FAERS Safety Report 8223163-9 (Version None)
Quarter: 2012Q1

REPORT INFORMATION
  Report Type: 
  Country: None (occurrence: None)
  Receive Date: 20120321
  Receipt Date: 20100223
  Transmission Date: 20120608
  Serious: No
  Sender: FDA-Public Use
  Company Number: 2009BI036085

PATIENT
  Sex: Female
  Weight: 88 kg

DRUGS (1)
  1. TYSABRI [Suspect]
     Indication: MULTIPLE SCLEROSIS
     Route: 042
     Dates: start: 20070920

REACTIONS (21)
  - FEELING COLD [None]
  - MUSCULOSKELETAL STIFFNESS [None]
  - PRECANCEROUS CELLS PRESENT [None]
  - ARTHRITIS [None]
  - SMEAR CERVIX ABNORMAL [None]
  - TREMOR [None]
  - BENIGN OVARIAN TUMOUR [None]
  - MULTIPLE SCLEROSIS [None]
  - HYPOTENSION [None]
  - CERVICAL DYSPLASIA [None]
  - VAGINAL DISCHARGE [None]
  - LYMPHOCYTE COUNT ABNORMAL [None]
  - MUSCLE TIGHTNESS [None]
  - BACK PAIN [None]
  - LYMPHOCYTE MORPHOLOGY ABNORMAL [None]
  - AMNESIA [None]
  - FALL [None]
  - WHITE BLOOD CELL COUNT INCREASED [None]
  - VAGINAL INFECTION [None]
  - FATIGUE [None]
  - ASTHENIA [None]
